FAERS Safety Report 4754863-0 (Version None)
Quarter: 2005Q3

REPORT INFORMATION
  Report Type: 
  Country: None (occurrence: None)
  Receive Date: 20050829
  Receipt Date: 20050314
  Transmission Date: 20060218
  Serious: Yes (Hospitalization, Disabling, Other)
  Sender: FDA-Public Use
  Company Number: US-MERCK-0503USA02919

PATIENT
  Age: 60 Year
  Sex: Male
  Weight: 91 kg

DRUGS (7)
  1. VIOXX [Suspect]
     Indication: ARTHRALGIA
     Route: 048
     Dates: start: 19990101, end: 20040101
  2. VIOXX [Suspect]
     Indication: ARTHRITIS
     Route: 048
     Dates: start: 19990101, end: 20040101
  3. ASPIRIN [Concomitant]
     Route: 065
     Dates: start: 19950101, end: 19990101
  4. ALDACTONE [Concomitant]
     Route: 065
     Dates: start: 20010101
  5. LASIX [Concomitant]
     Route: 065
     Dates: start: 20010101
  6. ALLEGRA [Concomitant]
     Route: 065
  7. SYMBYAX [Concomitant]
     Route: 065
     Dates: start: 19991201

REACTIONS (11)
  - AMNESIA [None]
  - ARTHRITIS [None]
  - BLOOD CHOLESTEROL INCREASED [None]
  - BLOOD TRIGLYCERIDES INCREASED [None]
  - CARDIAC FAILURE CONGESTIVE [None]
  - DEPRESSION [None]
  - DIABETES MELLITUS [None]
  - DYSPEPSIA [None]
  - GASTROOESOPHAGEAL REFLUX DISEASE [None]
  - MYOCARDIAL INFARCTION [None]
  - SINUSITIS [None]
